FAERS Safety Report 8726555 (Version 3)
Quarter: 2012Q4

REPORT INFORMATION
  Report Type: 
  Country: AU (occurrence: AU)
  Receive Date: 20120816
  Receipt Date: 20120925
  Transmission Date: 20130627
  Serious: Yes (Hospitalization, Other)
  Sender: FDA-Public Use
  Company Number: PHHY2012AU070723

PATIENT
  Age: 31 Year
  Sex: Male

DRUGS (2)
  1. CLOZARIL [Suspect]
     Dosage: 25 mg, UNK
     Route: 048
     Dates: start: 20080929
  2. CLOZARIL [Suspect]
     Dosage: 400 mg, UNK
     Route: 048

REACTIONS (5)
  - Psychotic disorder [Not Recovered/Not Resolved]
  - Hallucination, auditory [Recovering/Resolving]
  - Delusion [Recovering/Resolving]
  - Blood creatine phosphokinase increased [Unknown]
  - Treatment noncompliance [None]
